FAERS Safety Report 6932003-7 (Version None)
Quarter: 2010Q3

REPORT INFORMATION
  Report Type: 
  Country: None (occurrence: None)
  Receive Date: 20100819
  Receipt Date: 20100812
  Transmission Date: 20110219
  Serious: Yes (Death, Hospitalization)
  Sender: FDA-Public Use
  Company Number: ES-BRISTOL-MYERS SQUIBB COMPANY-15243751

PATIENT
  Age: 45 Year
  Sex: Male

DRUGS (6)
  1. ERBITUX [Suspect]
     Indication: COLON CANCER METASTATIC
     Dosage: RECENT INF:17JUN2010
     Route: 042
     Dates: start: 20100615, end: 20100617
  2. IRINOTECAN HCL [Suspect]
     Indication: COLON CANCER METASTATIC
     Dosage: RECENT INF:17JUN2010
     Route: 042
     Dates: start: 20100615, end: 20100617
  3. FLUOROURACIL [Suspect]
     Indication: COLON CANCER METASTATIC
     Dosage: RECENT INF:17JUN2010
     Dates: start: 20100615, end: 20100617
  4. PRIMPERAN TAB [Concomitant]
     Indication: PROPHYLAXIS OF NAUSEA AND VOMITING
     Dosage: 1DF=100MG/5ML
     Route: 042
  5. PRIMPERAN TAB [Concomitant]
     Dosage: 1DF=100MG/5ML
     Route: 042
  6. SEVREDOL [Concomitant]
     Route: 048

REACTIONS (1)
  - VOMITING [None]
